FAERS Safety Report 8853407 (Version 2)
Quarter: 2012Q4

REPORT INFORMATION
  Report Type: 
  Country: BR (occurrence: BR)
  Receive Date: 20121022
  Receipt Date: 20121107
  Transmission Date: 20130627
  Serious: Yes (Other)
  Sender: FDA-Public Use
  Company Number: BR-PFIZER INC-2012259005

PATIENT
  Sex: Female

DRUGS (2)
  1. DEPO-PROVERA [Suspect]
     Dosage: 150 mg, UNK
     Route: 030
  2. DEPO-PROVERA [Suspect]
     Dosage: 150 mg, UNK
     Route: 030
     Dates: start: 201209

REACTIONS (3)
  - Wrong technique in drug usage process [Unknown]
  - Injection site mass [Unknown]
  - Injection site reaction [Unknown]
